FAERS Safety Report 7358166-X (Version None)
Quarter: 2011Q1

REPORT INFORMATION
  Report Type: 
  Country: None (occurrence: None)
  Receive Date: 20110225
  Receipt Date: 20101118
  Transmission Date: 20110831
  Serious: No
  Sender: FDA-Public Use
  Company Number: 318683

PATIENT
  Age: 58 Year
  Sex: Female

DRUGS (4)
  1. VICTOZA [Suspect]
     Indication: TYPE 2 DIABETES MELLITUS
     Dosage: 0.6 MG, QD, SUBCUTANEOUS
     Route: 058
  2. PLAVIX [Concomitant]
  3. SYNTHROID [Concomitant]
  4. NOVOLOG MIX 70/30 [Concomitant]

REACTIONS (1)
  - MUSCLE SPASMS [None]
